FAERS Safety Report 7540428-4 (Version None)
Quarter: 2011Q2

REPORT INFORMATION
  Report Type: 
  Country: None (occurrence: None)
  Receive Date: 20110603
  Receipt Date: 20110518
  Transmission Date: 20111010
  Serious: Yes (Hospitalization)
  Sender: FDA-Public Use
  Company Number: 2011MA006146

PATIENT
  Age: 51 Year
  Sex: Female

DRUGS (3)
  1. PACLITAXEL [Suspect]
     Indication: ANGIOPLASTY
  2. NITROGLYCERIN [Concomitant]
  3. CALCIUM CHANNEL BLOCKER [Concomitant]

REACTIONS (3)
  - ARTERIOSCLEROSIS [None]
  - ARTERIOSPASM CORONARY [None]
  - ANGINA PECTORIS [None]
